FAERS Safety Report 4957813-7 (Version None)
Quarter: 2006Q1

REPORT INFORMATION
  Report Type: 
  Country: None (occurrence: None)
  Receive Date: 20060330
  Receipt Date: 20060322
  Transmission Date: 20060701
  Serious: Yes (Hospitalization)
  Sender: FDA-Public Use
  Company Number: 2006UW05038

PATIENT
  Age: 41 Year
  Sex: Female

DRUGS (4)
  1. SEROQUEL [Suspect]
     Route: 048
  2. WELLBUTRIN [Suspect]
  3. TOPAMAX [Suspect]
  4. LEVAQUIN [Interacting]

REACTIONS (4)
  - DRUG INTERACTION [None]
  - OVERDOSE [None]
  - PNEUMONIA ASPIRATION [None]
  - VENTRICULAR TACHYCARDIA [None]
